FAERS Safety Report 16726757 (Version 1)
Quarter: 2019Q3

REPORT INFORMATION
  Report Type: Spontaneous
  Country: IN (occurrence: IN)
  Receive Date: 20190821
  Receipt Date: 20190821
  Transmission Date: 20191005
  Serious: Yes (Hospitalization)
  Sender: FDA-Public Use
  Company Number: IN-GEHC-2019CSU004167

PATIENT

DRUGS (2)
  1. OMNIPAQUE [Suspect]
     Active Substance: IOHEXOL
     Indication: UROGRAM
     Dosage: 40 ML, SINGLE
     Route: 042
     Dates: start: 20190808, end: 20190808
  2. OMNIPAQUE [Suspect]
     Active Substance: IOHEXOL
     Indication: HYDRONEPHROSIS

REACTIONS (3)
  - Loss of consciousness [Recovered/Resolved]
  - Anal incontinence [Recovered/Resolved]
  - Vomiting [Recovered/Resolved]

NARRATIVE: CASE EVENT DATE: 20190808
